FAERS Safety Report 7123830-4 (Version None)
Quarter: 2010Q4

REPORT INFORMATION
  Report Type: 
  Country: None (occurrence: None)
  Receive Date: 20101125
  Receipt Date: 20101117
  Transmission Date: 20110411
  Serious: Yes (Other)
  Sender: FDA-Public Use
  Company Number: PHHY2010JP78367

PATIENT
  Age: 34 Year
  Sex: Female

DRUGS (9)
  1. CYCLOSPORINE [Suspect]
     Indication: PSORIASIS
     Dosage: UNK
  2. CYCLOSPORINE [Suspect]
     Dosage: 0.6 MG/KG
  3. ETRETINATE [Concomitant]
     Indication: PSORIASIS
     Dosage: UNK
  4. ETRETINATE [Concomitant]
     Dosage: 0.65MG/KG
  5. AURANOFIN [Concomitant]
     Indication: PUSTULAR PSORIASIS
     Dosage: UNK
  6. BREDININ [Concomitant]
     Indication: PUSTULAR PSORIASIS
     Dosage: UNK
  7. MYCOPHENOLATE MOFETIL [Concomitant]
     Indication: PUSTULAR PSORIASIS
     Dosage: 1 GM
     Route: 048
  8. MYCOPHENOLATE MOFETIL [Concomitant]
     Dosage: 1.5 GM
     Route: 048
  9. MYCOPHENOLATE MOFETIL [Concomitant]
     Dosage: UNK
     Route: 048

REACTIONS (8)
  - ALOPECIA [None]
  - BLOOD PRESSURE INCREASED [None]
  - DYSLIPIDAEMIA [None]
  - OSTEONECROSIS [None]
  - RENAL DISORDER [None]
  - SKIN ATROPHY [None]
  - SKIN EXFOLIATION [None]
  - UPPER RESPIRATORY TRACT INFECTION [None]
